FAERS Safety Report 6895928-7 (Version None)
Quarter: 2010Q3

REPORT INFORMATION
  Report Type: 
  Country: None (occurrence: None)
  Receive Date: 20100728
  Receipt Date: 20100720
  Transmission Date: 20110219
  Serious: Yes (Other)
  Sender: FDA-Public Use
  Company Number: DSA_43377_2010

PATIENT
  Sex: Female

DRUGS (12)
  1. XENAZINE [Suspect]
     Indication: TARDIVE DYSKINESIA
     Dosage: (12.5 MG, 2.5 TABLETS TWICE DAILY ORAL), (25 MG BID ORAL), (37.5 MG BID ORAL)
     Route: 048
     Dates: start: 20090427, end: 20100331
  2. XENAZINE [Suspect]
     Indication: TARDIVE DYSKINESIA
     Dosage: (12.5 MG, 2.5 TABLETS TWICE DAILY ORAL), (25 MG BID ORAL), (37.5 MG BID ORAL)
     Route: 048
     Dates: start: 20100401, end: 20100502
  3. XENAZINE [Suspect]
     Indication: TARDIVE DYSKINESIA
     Dosage: (12.5 MG, 2.5 TABLETS TWICE DAILY ORAL), (25 MG BID ORAL), (37.5 MG BID ORAL)
     Route: 048
     Dates: start: 20100503
  4. LYRICA [Concomitant]
  5. CYMBALTA [Concomitant]
  6. FLEXERIL [Concomitant]
  7. PRILOSEC [Concomitant]
  8. LEVOTHYROXINE [Concomitant]
  9. DIAZEPAM [Concomitant]
  10. DYAZIDE [Concomitant]
  11. ASPIRIN [Concomitant]
  12. MULTI-VITAMINS [Concomitant]

REACTIONS (3)
  - AKATHISIA [None]
  - MUSCLE TWITCHING [None]
  - TARDIVE DYSKINESIA [None]
